FAERS Safety Report 12656603 (Version 1)
Quarter: 2016Q3

REPORT INFORMATION
  Report Type: Spontaneous
  Country: US (occurrence: US)
  Receive Date: 20160816
  Receipt Date: 20160816
  Transmission Date: 20161109
  Serious: No
  Sender: FDA-Public Use
  Company Number: US-BAYER-2016-158366

PATIENT
  Sex: Female

DRUGS (2)
  1. CLARITIN [Suspect]
     Active Substance: LORATADINE
     Dosage: DOSE NOT PROVIDED, TAKEN 20 YEARS AGO
  2. CLARITIN [Suspect]
     Active Substance: LORATADINE
     Dosage: 10MG TABLET 10CT

REACTIONS (3)
  - Headache [None]
  - Dyspnoea [None]
  - Off label use [None]
